FAERS Safety Report 9060742 (Version 1)
Quarter: 2013Q1

REPORT INFORMATION
  Report Type: Spontaneous
  Country: FI (occurrence: FI)
  Receive Date: 20130204
  Receipt Date: 20130204
  Transmission Date: 20140127
  Serious: Yes (Death)
  Sender: FDA-Public Use
  Company Number: FI-ROCHE-1186823

PATIENT
  Age: 58 None
  Sex: Female

DRUGS (2)
  1. XELODA [Suspect]
     Indication: GASTROINTESTINAL CARCINOMA
     Route: 048
     Dates: start: 20130121
  2. OXALIPLATIN [Concomitant]

REACTIONS (1)
  - Myocardial infarction [Fatal]
